FAERS Safety Report 7863216-8 (Version None)
Quarter: 2011Q4

REPORT INFORMATION
  Report Type: 
  Country: None (occurrence: None)
  Receive Date: 20111027
  Receipt Date: 20101115
  Transmission Date: 20120403
  Serious: No
  Sender: FDA-Public Use
  Company Number: US-AMGEN-TCS436829

PATIENT
  Age: 46 Year
  Sex: Female

DRUGS (9)
  1. ENBREL [Suspect]
     Indication: ANKYLOSING SPONDYLITIS
     Dosage: 50 MG, QWK
     Route: 058
     Dates: start: 20070701
  2. HYDROCODONE BITARTRATE [Concomitant]
     Dosage: 5 MG, BID
  3. ALEVE [Suspect]
     Dosage: UNK
     Dates: start: 20100101
  4. CALCIUM+VIT D                      /00944201/ [Concomitant]
  5. MULTIVITAMIN                       /00097801/ [Concomitant]
  6. ENBREL [Suspect]
     Indication: FIBROMYALGIA
  7. BLACK COHOSH                       /01456805/ [Concomitant]
  8. LORTAB [Concomitant]
  9. AMITRIPTYLINE HCL [Suspect]
     Indication: SLEEP DISORDER

REACTIONS (11)
  - OEDEMA PERIPHERAL [None]
  - ABDOMINAL DISCOMFORT [None]
  - AGITATION [None]
  - POOR QUALITY SLEEP [None]
  - BACK PAIN [None]
  - DRUG INEFFECTIVE [None]
  - MUSCULOSKELETAL PAIN [None]
  - ARTHRALGIA [None]
  - PYREXIA [None]
  - FATIGUE [None]
  - ARTHROPATHY [None]
